FAERS Safety Report 7235492-6 (Version None)
Quarter: 2011Q1

REPORT INFORMATION
  Report Type: 
  Country: None (occurrence: None)
  Receive Date: 20110120
  Receipt Date: 20110113
  Transmission Date: 20110831
  Serious: Yes (Other)
  Sender: FDA-Public Use
  Company Number: JP-AMGEN-QUU444761

PATIENT

DRUGS (5)
  1. AZULFIDINE [Concomitant]
     Dosage: 250 MG, QID
     Route: 048
  2. LOXONIN                            /00890702/ [Suspect]
  3. ENBREL [Suspect]
     Indication: RHEUMATOID ARTHRITIS
     Dosage: 25 MG, 2 TIMES/WK
     Route: 058
     Dates: start: 20100716, end: 20100827
  4. PREDNISOLONE [Concomitant]
     Dosage: 3 MG, QD
     Route: 048
     Dates: start: 20100807, end: 20100828
  5. PREDNISOLONE [Concomitant]
     Dosage: 2 MG, QID
     Route: 048
     Dates: start: 20100705, end: 20100806

REACTIONS (2)
  - PERICARDIAL EFFUSION [None]
  - PLEURAL EFFUSION [None]
